FAERS Safety Report 19446394 (Version 14)
Quarter: 2022Q4

REPORT INFORMATION
  Report Type: Spontaneous
  Country: US (occurrence: US)
  Receive Date: 20210622
  Receipt Date: 20221111
  Transmission Date: 20230113
  Serious: Yes (Death, Hospitalization, Other)
  Sender: FDA-Public Use
  Company Number: US-SUN PHARMACEUTICAL INDUSTRIES LTD-2021R1-300790

PATIENT
  Age: 71 Year
  Sex: Female
  Weight: 67.574 kg

DRUGS (6)
  1. EPOPROSTENOL [Suspect]
     Active Substance: EPOPROSTENOL
     Indication: Pulmonary arterial hypertension
     Dosage: 30 NG/KG/MIN, CONTINUOUS
     Route: 042
     Dates: start: 20210405
  2. EPOPROSTENOL [Suspect]
     Active Substance: EPOPROSTENOL
     Indication: Pulmonary arterial hypertension
     Dosage: 30 NG/KG/MIN CONTINOUS
     Route: 042
     Dates: start: 20210405
  3. EPOPROSTENOL [Suspect]
     Active Substance: EPOPROSTENOL
     Dosage: 30 NG/KG/MIN-CONTINOUS
     Route: 042
     Dates: start: 20210405
  4. EPOPROSTENOL [Suspect]
     Active Substance: EPOPROSTENOL
     Dosage: 30 NG/KG/MIN
     Route: 042
     Dates: start: 20210405
  5. OPSUMIT [Concomitant]
     Active Substance: MACITENTAN
     Indication: Product used for unknown indication
     Dosage: UNK
     Route: 065
  6. VELETRI [Concomitant]
     Active Substance: EPOPROSTENOL
     Indication: Product used for unknown indication
     Dosage: UNK
     Route: 065

REACTIONS (27)
  - Asthenia [Unknown]
  - Brain injury [Unknown]
  - Death [Fatal]
  - COVID-19 [Unknown]
  - Dizziness [Unknown]
  - Fall [Unknown]
  - Gastric dilatation [Unknown]
  - Head injury [Unknown]
  - Syncope [Unknown]
  - Pneumonia [Unknown]
  - Cardiac failure [Unknown]
  - Chronic obstructive pulmonary disease [Unknown]
  - Hand fracture [Unknown]
  - Device issue [Recovered/Resolved]
  - Disease progression [Unknown]
  - Chest pain [Unknown]
  - Fluid retention [Unknown]
  - Dyspnoea [Unknown]
  - Haemoglobin decreased [Unknown]
  - Pulmonary hypertension [Unknown]
  - Confusional state [Unknown]
  - Hypersensitivity [Unknown]
  - Emotional disorder [Unknown]
  - Inappropriate schedule of product administration [Unknown]
  - Nausea [Unknown]
  - Memory impairment [Unknown]
  - Anxiety [Unknown]

NARRATIVE: CASE EVENT DATE: 20220118
